FAERS Safety Report 21320149 (Version 3)
Quarter: 2022Q4

REPORT INFORMATION
  Report Type: Report from Study
  Country: US (occurrence: US)
  Receive Date: 20220911
  Receipt Date: 20221004
  Transmission Date: 20230113
  Serious: No
  Sender: FDA-Public Use
  Company Number: US-SA-SAC20220905000520

PATIENT
  Age: 79 Year
  Sex: Female
  Weight: 90.703 kg

DRUGS (18)
  1. AUBAGIO [Suspect]
     Active Substance: TERIFLUNOMIDE
     Indication: Multiple sclerosis
     Dosage: 1 DF, QD
     Route: 048
     Dates: start: 20220901
  2. GABAPENTIN [Concomitant]
     Active Substance: GABAPENTIN
     Dosage: 1 DF, BID
  3. AMOXICILLIN [Concomitant]
     Active Substance: AMOXICILLIN
     Dosage: 1 DF
  4. HYDROCHLOROTHIAZIDE [Concomitant]
     Active Substance: HYDROCHLOROTHIAZIDE
     Dosage: 12.5MG
  5. ROSUVASTATIN CALCIUM [Concomitant]
     Active Substance: ROSUVASTATIN CALCIUM
     Dosage: 1 DF
  6. METOPROLOL TARTRATE [Concomitant]
     Active Substance: METOPROLOL TARTRATE
     Dosage: 5MG
  7. AMLODIPINE BESYLATE [Concomitant]
     Active Substance: AMLODIPINE BESYLATE
     Dosage: 50MG
  8. COLLAGENASE [Concomitant]
     Active Substance: COLLAGENASE CLOSTRIDIUM HISTOLYTICUM
  9. RESTASIS [Concomitant]
     Active Substance: CYCLOSPORINE
     Dosage: UNKNOWN
  10. OLMESARTAN MEDOXOMIL [Concomitant]
     Active Substance: OLMESARTAN MEDOXOMIL
     Dosage: 1 DF
  11. LEVOTHYROXINE [Concomitant]
     Active Substance: LEVOTHYROXINE
     Dosage: 1 DF
  12. CALTRATE [Concomitant]
     Active Substance: CALCIUM CARBONATE
     Dosage: UNKNOWN
  13. PEPCID [Concomitant]
     Active Substance: FAMOTIDINE
     Dosage: 1 DF
  14. ASPIRIN [Concomitant]
     Active Substance: ASPIRIN
     Dosage: 1 DF
  15. MODERNA COVID-19 VACCINE [Concomitant]
     Active Substance: ELASOMERAN
     Dosage: UNKNOWN
  16. SYNTHROID [Concomitant]
     Active Substance: LEVOTHYROXINE SODIUM
  17. ATORVASTATIN [Concomitant]
     Active Substance: ATORVASTATIN
     Dosage: UNK
  18. MINERALS\VITAMINS [Concomitant]
     Active Substance: MINERALS\VITAMINS
     Dosage: UNK

REACTIONS (8)
  - Vision blurred [Not Recovered/Not Resolved]
  - Back disorder [Not Recovered/Not Resolved]
  - Nerve injury [Unknown]
  - Pruritus [Unknown]
  - Rash macular [Unknown]
  - Hypoaesthesia [Not Recovered/Not Resolved]
  - Paraesthesia [Unknown]
  - Drug ineffective [Unknown]

NARRATIVE: CASE EVENT DATE: 20220901
